FAERS Safety Report 22255661 (Version 1)
Quarter: 2023Q2

REPORT INFORMATION
  Report Type: Report from Study
  Country: BR (occurrence: BR)
  Receive Date: 20230426
  Receipt Date: 20230426
  Transmission Date: 20230721
  Serious: Yes (Hospitalization)
  Sender: FDA-Public Use
  Company Number: BR-TAKEDA-BR201815248

PATIENT
  Age: 5 Year
  Sex: Male

DRUGS (2)
  1. HEMO-8R [Suspect]
     Active Substance: ANTIHEMOPHILIC FACTOR, HUMAN RECOMBINANT
     Indication: Prophylaxis
     Dosage: UNK
     Route: 042
     Dates: start: 20161013
  2. HEMO-8R [Suspect]
     Active Substance: ANTIHEMOPHILIC FACTOR, HUMAN RECOMBINANT
     Dosage: 500 INTERNATIONAL UNIT
     Route: 042
     Dates: start: 20170811

REACTIONS (1)
  - Upper limb fracture [Recovered/Resolved]

NARRATIVE: CASE EVENT DATE: 20170813
